FAERS Safety Report 21495551 (Version 1)
Quarter: 2022Q4

REPORT INFORMATION
  Report Type: Report from Study
  Country: US (occurrence: US)
  Receive Date: 20221022
  Receipt Date: 20221022
  Transmission Date: 20230113
  Serious: Yes (Other)
  Sender: FDA-Public Use
  Company Number: US-ABBVIE-4172062

PATIENT
  Sex: Female
  Weight: 86.818 kg

DRUGS (6)
  1. RINVOQ [Suspect]
     Active Substance: UPADACITINIB
     Indication: Ankylosing spondylitis
     Dosage: 15 MG
     Route: 048
     Dates: start: 20220708
  2. DULOXETINE I-ICL 60 MG CAPSULE DR, OTHER [Concomitant]
     Indication: Product used for unknown indication
  3. VITAMIN D3 10 MCG CAPSULE [Concomitant]
     Indication: Product used for unknown indication
  4. LEVOTHYROXINE 25 MCG CAPSULE, [Concomitant]
     Indication: Product used for unknown indication
  5. OXYBUTYNIN CHLORIDE [Concomitant]
     Active Substance: OXYBUTYNIN CHLORIDE
     Indication: Product used for unknown indication
  6. OMEPRAZOLE 40 MG CAPSULE DR, [Concomitant]
     Indication: Product used for unknown indication

REACTIONS (1)
  - Loss of consciousness [Unknown]

NARRATIVE: CASE EVENT DATE: 20220101
